FAERS Safety Report 4907485-2 (Version None)
Quarter: 2006Q1

REPORT INFORMATION
  Report Type: 
  Country: None (occurrence: None)
  Receive Date: 20060207
  Receipt Date: 20060125
  Transmission Date: 20060701
  Serious: Yes (Other)
  Sender: FDA-Public Use
  Company Number: 2006015214

PATIENT
  Age: 24 Year
  Sex: Female
  Weight: 58.9676 kg

DRUGS (3)
  1. DEPO-PROVERA [Suspect]
     Indication: CONTRACEPTION
     Dosage: 150 MG (150 MG, 1ST INJECTION), INTRAMUSCULAR ; 150 MG (150 MG, INJECTION RECEIVED) INTRAMUSCULAR ;
     Route: 030
     Dates: start: 20030501, end: 20030501
  2. DEPO-PROVERA [Suspect]
     Indication: CONTRACEPTION
     Dosage: 150 MG (150 MG, 1ST INJECTION), INTRAMUSCULAR ; 150 MG (150 MG, INJECTION RECEIVED) INTRAMUSCULAR ;
     Route: 030
     Dates: start: 20050621, end: 20050621
  3. DEPO-PROVERA [Suspect]
     Indication: CONTRACEPTION
     Dosage: 150 MG (150 MG, 1ST INJECTION), INTRAMUSCULAR ; 150 MG (150 MG, INJECTION RECEIVED) INTRAMUSCULAR ;
     Route: 030
     Dates: start: 20050921, end: 20050921

REACTIONS (6)
  - DRUG EXPOSURE DURING PREGNANCY [None]
  - POOR QUALITY DRUG ADMINISTERED [None]
  - PREGNANCY WITH INJECTABLE CONTRACEPTIVE [None]
  - THROMBOSIS [None]
  - TREATMENT NONCOMPLIANCE [None]
  - UTERINE HAEMORRHAGE [None]
